FAERS Safety Report 5382627-6 (Version None)
Quarter: 2007Q3

REPORT INFORMATION
  Report Type: 
  Country: None (occurrence: None)
  Receive Date: 20070710
  Receipt Date: 20070706
  Transmission Date: 20080115
  Serious: Yes (Death)
  Sender: FDA-Public Use
  Company Number: NL-BAXTER-2007BH006043

PATIENT
  Sex: Male
  Weight: 52 kg

DRUGS (3)
  1. SODIUM CHLORIDE 0.9% IN PLASTIC CONTAINER [Suspect]
     Indication: DRUG USE FOR UNKNOWN INDICATION
     Route: 065
     Dates: start: 20070101, end: 20070101
  2. MEROPENEM [Concomitant]
  3. ANTIBIOTICS [Concomitant]

REACTIONS (1)
  - DEATH [None]
